FAERS Safety Report 7056886-8 (Version None)
Quarter: 2010Q4

REPORT INFORMATION
  Report Type: 
  Country: None (occurrence: None)
  Receive Date: 20101018
  Receipt Date: 20101002
  Transmission Date: 20110411
  Serious: Yes (Other)
  Sender: FDA-Public Use
  Company Number: 2010AP002123

PATIENT
  Age: 60 Year
  Sex: Male

DRUGS (7)
  1. CARBIDOPA + LEVODOPA [Suspect]
     Indication: PARKINSON'S DISEASE
     Dosage: 5XD; TID; PO
     Route: 048
     Dates: start: 20040101
  2. CARBIDOPA + LEVODOPA [Suspect]
     Indication: PARKINSON'S DISEASE
     Dosage: 5XD; TID; PO
     Route: 048
     Dates: start: 20060101
  3. SELEGILINE HCL [Suspect]
     Indication: PARKINSON'S DISEASE
     Dosage: 5 MG;BID
     Dates: start: 20020101, end: 20070101
  4. AMANTADINE HCL [Suspect]
     Indication: PARKINSON'S DISEASE
     Dosage: 100 MG; BID
     Dates: start: 20070101
  5. PRAMIPEXOLE [Suspect]
     Indication: PARKINSON'S DISEASE
     Dosage: 1 MG; QID 1.5 MG; HS
     Dates: start: 20080401
  6. ENTACAPONE [Suspect]
     Indication: PARKINSON'S DISEASE
     Dosage: 200 MG; QID
     Dates: start: 20060101
  7. ROPINIROLE [Suspect]
     Indication: PARKINSON'S DISEASE
     Dosage: 200 MG; QID
     Dates: start: 20081201

REACTIONS (1)
  - HALLUCINATIONS, MIXED [None]
